FAERS Safety Report 10432196 (Version 1)
Quarter: 2014Q3

REPORT INFORMATION
  Report Type: Spontaneous
  Country: GB (occurrence: GB)
  Receive Date: 20140905
  Receipt Date: 20140905
  Transmission Date: 20150326
  Serious: Yes (Life-Threatening, Hospitalization)
  Sender: FDA-Public Use
  Company Number: GB-ACCORD-025702

PATIENT
  Age: 68 Year
  Sex: Male

DRUGS (8)
  1. RAMIPRIL. [Concomitant]
     Active Substance: RAMIPRIL
  2. PEPTAC LIQUID [Concomitant]
  3. LANSOPRAZOLE. [Concomitant]
     Active Substance: LANSOPRAZOLE
  4. ACETYLSALICYLIC ACID [Concomitant]
     Active Substance: ASPIRIN
  5. SIMVASTATIN. [Suspect]
     Active Substance: SIMVASTATIN
     Indication: HYPERCHOLESTEROLAEMIA
     Route: 048
     Dates: end: 20140818
  6. RIFAMPICIN [Concomitant]
     Active Substance: RIFAMPIN
     Indication: MYCOBACTERIUM MARINUM INFECTION
     Dosage: STOPPED DUE TO ADVERSE REACTIONS
  7. ETHAMBUTOL [Concomitant]
     Active Substance: ETHAMBUTOL HYDROCHLORIDE
     Indication: MYCOBACTERIUM MARINUM INFECTION
  8. CLARITHROMYCIN/CLARITHROMYCIN LACTOBIONATE [Suspect]
     Active Substance: CLARITHROMYCIN LACTOBIONATE
     Indication: HYPERCHOLESTEROLAEMIA

REACTIONS (4)
  - Off label use [Unknown]
  - Blood potassium increased [None]
  - Pain in extremity [Unknown]
  - Renal failure acute [Not Recovered/Not Resolved]
